FAERS Safety Report 6815736-2 (Version None)
Quarter: 2010Q3

REPORT INFORMATION
  Report Type: 
  Country: None (occurrence: None)
  Receive Date: 20100702
  Receipt Date: 20100622
  Transmission Date: 20110219
  Serious: Yes (Hospitalization)
  Sender: FDA-Public Use
  Company Number: DE-AMGEN-US347278

PATIENT
  Age: 82 Year
  Sex: Female

DRUGS (7)
  1. ENBREL [Suspect]
     Indication: RHEUMATOID ARTHRITIS
     Route: 058
     Dates: start: 20090209
  2. ENBREL [Suspect]
     Route: 058
     Dates: end: 20100101
  3. PREDNISOLONE [Concomitant]
     Route: 048
  4. CALCIUM CARBONATE [Concomitant]
  5. IBUPROFEN [Concomitant]
     Dosage: AS NEEDED
  6. TRAMADOL HCL [Concomitant]
  7. PROTELOS [Concomitant]

REACTIONS (6)
  - DRUG INEFFECTIVE [None]
  - HEADACHE [None]
  - HOT FLUSH [None]
  - HYPOAESTHESIA [None]
  - PAIN IN EXTREMITY [None]
  - POLYNEUROPATHY [None]
